FAERS Safety Report 9639445 (Version 3)
Quarter: 2013Q4

REPORT INFORMATION
  Report Type: Report from Study
  Country: CZ (occurrence: CZ)
  Receive Date: 20131022
  Receipt Date: 20131118
  Transmission Date: 20140711
  Serious: Yes (Hospitalization)
  Sender: FDA-Public Use
  Company Number: CZ-PFIZER INC-2013300018

PATIENT
  Sex: Female
  Weight: 56 kg

DRUGS (1)
  1. SUTENT [Suspect]
     Indication: RENAL CELL CARCINOMA
     Dosage: UNK/ONE DAILY 4 WEEKS ON, 2 WEEKS OFF
     Route: 048
     Dates: start: 201308

REACTIONS (7)
  - Viral infection [Unknown]
  - Diarrhoea [Unknown]
  - Fluid intake reduced [Unknown]
  - Fatigue [Unknown]
  - Burning sensation [Unknown]
  - Abdominal discomfort [Unknown]
  - Sensitivity to weather change [Unknown]
